FAERS Safety Report 23712608 (Version 1)
Quarter: 2024Q2

REPORT INFORMATION
  Report Type: Spontaneous
  Country: US (occurrence: US)
  Receive Date: 20240405
  Receipt Date: 20240405
  Transmission Date: 20240716
  Serious: No
  Sender: FDA-Public Use
  Company Number: US-009507513-2403USA008017

PATIENT
  Age: 22 Year
  Sex: Male

DRUGS (3)
  1. TEMODAR [Suspect]
     Active Substance: TEMOZOLOMIDE
     Indication: Ewing^s sarcoma recurrent
  2. VINCRISTINE [Concomitant]
     Active Substance: VINCRISTINE
     Indication: Ewing^s sarcoma recurrent
  3. IRINOTECAN [Concomitant]
     Active Substance: IRINOTECAN
     Indication: Ewing^s sarcoma recurrent

REACTIONS (1)
  - Product use in unapproved indication [Unknown]
